FAERS Safety Report 9425022 (Version 7)
Quarter: 2014Q2

REPORT INFORMATION
  Report Type: Report from Study
  Country: AU (occurrence: AU)
  Receive Date: 20130729
  Receipt Date: 20140407
  Transmission Date: 20141212
  Serious: Yes (Hospitalization)
  Sender: FDA-Public Use
  Company Number: AU-ROCHE-1251404

PATIENT
  Age: 72 Year
  Sex: Male
  Weight: 81.5 kg

DRUGS (8)
  1. VEMURAFENIB [Suspect]
     Indication: MALIGNANT MELANOMA
     Route: 048
     Dates: start: 20130716, end: 20130717
  2. VEMURAFENIB [Suspect]
     Indication: MALIGNANT MELANOMA
     Dosage: DOSE REDUCED
     Route: 048
     Dates: start: 20130801
  3. XALATAN [Concomitant]
     Indication: GLAUCOMA
     Route: 047
     Dates: start: 20130619
  4. MESASAL [Concomitant]
     Indication: CROHN^S DISEASE
     Route: 048
     Dates: start: 2006
  5. DIAFORMIN [Concomitant]
     Indication: TYPE 2 DIABETES MELLITUS
     Route: 048
     Dates: start: 2010
  6. ARATAC [Concomitant]
     Indication: MITRAL VALVE INCOMPETENCE
     Route: 048
     Dates: start: 2011
  7. PLACEBO [Suspect]
     Indication: PRODUCT USED FOR UNKNOWN INDICATION
     Route: 048
     Dates: start: 20130716, end: 20130717
  8. PLACEBO [Suspect]
     Dosage: DOSE REDUCED
     Route: 048
     Dates: start: 20130801

REACTIONS (1)
  - Pancreatitis [Recovered/Resolved]
